FAERS Safety Report 18426422 (Version 1)
Quarter: 2020Q4

REPORT INFORMATION
  Report Type: Spontaneous
  Country: US (occurrence: US)
  Receive Date: 20201026
  Receipt Date: 20201026
  Transmission Date: 20210114
  Serious: Yes (Other)
  Sender: FDA-Public Use
  Company Number: None

PATIENT
  Age: 78 Year
  Sex: Female

DRUGS (2)
  1. GAZYVA [Suspect]
     Active Substance: OBINUTUZUMAB
  2. BENDEKA [Concomitant]
     Active Substance: BENDAMUSTINE HYDROCHLORIDE

REACTIONS (6)
  - Nausea [None]
  - Dyspnoea [None]
  - Blood pressure increased [None]
  - Infusion related reaction [None]
  - Anxiety [None]
  - Oxygen saturation decreased [None]

NARRATIVE: CASE EVENT DATE: 20201014
